FAERS Safety Report 6636890-1 (Version None)
Quarter: 2010Q1

REPORT INFORMATION
  Report Type: 
  Country: None (occurrence: None)
  Receive Date: 20100316
  Receipt Date: 20100303
  Transmission Date: 20100710
  Serious: Yes (Hospitalization)
  Sender: FDA-Public Use
  Company Number: PHHY2010BE08602

PATIENT
  Sex: Male

DRUGS (24)
  1. AFINITOR [Suspect]
     Indication: RENAL CELL CARCINOMA
     Dosage: 10 MG, UNK
     Route: 048
     Dates: start: 20091015, end: 20100111
  2. AFINITOR [Suspect]
     Dosage: UNK
     Dates: start: 20100131
  3. DURAGESIC-100 [Concomitant]
     Dosage: 100 UG/3 DAYS
  4. DURAGESIC-100 [Concomitant]
     Dosage: 100 + 25 UG EVERY 3 DAYS
     Dates: start: 20100131
  5. MORPHINE SULFATE [Concomitant]
     Dosage: 40 MG, TID
  6. MORPHINE SULFATE [Concomitant]
     Dosage: 40 MG UP TO 6 X 4 TABLETS A DAY
  7. INNOHEP [Concomitant]
     Dosage: 4500 IU, QD
     Route: 058
  8. ELTHYRONE [Concomitant]
     Dosage: 125 UG AND 150 UG ON ALTERNATE DAYS
  9. ELTHYRONE [Concomitant]
     Dosage: 150 MG, QD
  10. EMCONCOR [Concomitant]
     Dosage: 2.5 MG, QD
  11. DAFALGAN [Concomitant]
     Dosage: 1 GRAM UPTO BID
  12. DAFALGAN [Concomitant]
     Dosage: 1 G UPTO QID
  13. ARANESP [Concomitant]
     Indication: NEPHROGENIC ANAEMIA
     Dosage: 0.45 UG/KG, 30 UG WEEKLY
     Dates: start: 20090501
  14. MEDROL [Concomitant]
     Dosage: 32 MG, UNK
  15. MEDROL [Concomitant]
     Dosage: 16 MG, 1/2 DAILY
  16. OMEPRAZOLE [Concomitant]
     Dosage: 20 MG, UNK
  17. ALPRAZOLAM [Concomitant]
     Dosage: 0.5 MG, BID
  18. CA KAYEXALATE [Concomitant]
     Dosage: 15 MG, TID
  19. RADIOTHERAPY [Concomitant]
     Indication: METASTASES TO BONE
  20. CHEMOTHERAPEUTICS NOS [Concomitant]
  21. LOSEC [Concomitant]
     Dosage: 20 MG, QD
  22. MOVICOL [Concomitant]
  23. LITICAN [Concomitant]
     Dosage: 50 MG UP TO 6 TIMES DAILY
  24. TRITACE [Concomitant]
     Dosage: 5 MG/DAY

REACTIONS (17)
  - ACUTE PRERENAL FAILURE [None]
  - BACK PAIN [None]
  - BRONCHOALVEOLAR LAVAGE [None]
  - C-REACTIVE PROTEIN INCREASED [None]
  - DEHYDRATION [None]
  - DIARRHOEA [None]
  - DISORIENTATION [None]
  - FUNGAL INFECTION [None]
  - GASTROENTERITIS [None]
  - GENERAL PHYSICAL HEALTH DETERIORATION [None]
  - LISTERIA SEPSIS [None]
  - MALIGNANT NEOPLASM PROGRESSION [None]
  - METASTASES TO BONE [None]
  - PNEUMOCYSTIS JIROVECI PNEUMONIA [None]
  - PYREXIA [None]
  - SALMONELLA SEPSIS [None]
  - SEPTIC SHOCK [None]
